FAERS Safety Report 16491643 (Version 1)
Quarter: 2019Q2

REPORT INFORMATION
  Report Type: Spontaneous
  Country: US (occurrence: US)
  Receive Date: 20190628
  Receipt Date: 20190628
  Transmission Date: 20190711
  Serious: Yes (Disabling)
  Sender: FDA-Public Use
  Company Number: US-DRREDDYS-USA/USA/19/0111356

PATIENT
  Sex: Male
  Weight: 54.45 kg

DRUGS (1)
  1. PRAMIPEXOLE. [Suspect]
     Active Substance: PRAMIPEXOLE
     Indication: PARKINSON^S DISEASE
     Route: 048
     Dates: end: 20190424

REACTIONS (6)
  - Road traffic accident [Unknown]
  - Judgement impaired [Unknown]
  - Drooling [Unknown]
  - Hypokinesia [Recovering/Resolving]
  - Musculoskeletal stiffness [Unknown]
  - Disability [Unknown]
